FAERS Safety Report 19588456 (Version 1)
Quarter: 2021Q3

REPORT INFORMATION
  Report Type: Spontaneous
  Country: US (occurrence: US)
  Receive Date: 20210720
  Receipt Date: 20210720
  Transmission Date: 20211014
  Serious: Yes (Hospitalization)
  Sender: FDA-Public Use
  Company Number: None

PATIENT
  Age: 4 Year
  Sex: Male

DRUGS (24)
  1. TADALAFIL. [Concomitant]
     Active Substance: TADALAFIL
  2. HYDROXYZINE [Concomitant]
     Active Substance: HYDROXYZINE HYDROCHLORIDE
  3. BENADRYL [Concomitant]
     Active Substance: DIPHENHYDRAMINE HYDROCHLORIDE
  4. CULTURELLE KIDS PROBIOTICS [Concomitant]
  5. SIMETHICONE (DIMETHICONE) [Concomitant]
     Active Substance: DIMETHICONE
  6. HYDROCORTISONE TOP OINT [Concomitant]
  7. NALOXONE NASAL SPRAY [Concomitant]
  8. CETIRIZINE [Concomitant]
     Active Substance: CETIRIZINE HYDROCHLORIDE
  9. AMBRISENTAN 5MG TABLETS 30/BO: 5MG [Suspect]
     Active Substance: AMBRISENTAN
     Indication: PULMONARY HYPERTENSION
     Route: 048
     Dates: start: 20200227
  10. IBUPROFEN. [Concomitant]
     Active Substance: IBUPROFEN
  11. POTASSIUM CHLORIDE. [Concomitant]
     Active Substance: POTASSIUM CHLORIDE
  12. SPIRONOLACTONE. [Concomitant]
     Active Substance: SPIRONOLACTONE
  13. TREPROSTINIL. [Concomitant]
     Active Substance: TREPROSTINIL
  14. MELATONIN [Concomitant]
     Active Substance: MELATONIN
  15. POLY?VI?SOL [Concomitant]
     Active Substance: VITAMINS
  16. TRIAMCINOLONE TOP OINT [Concomitant]
  17. TYLENOL [Concomitant]
     Active Substance: ACETAMINOPHEN
  18. CLOPIDOGREL [Concomitant]
     Active Substance: CLOPIDOGREL BISULFATE
  19. FERROUS SULFATE. [Concomitant]
     Active Substance: FERROUS SULFATE
  20. K PHOS NEUTRAL [Concomitant]
     Active Substance: POTASSIUM PHOSPHATE, MONOBASIC\SODIUM PHOSPHATE, DIBASIC, ANHYDROUS\SODIUM PHOSPHATE, MONOBASIC, MONOHYDRATE
  21. ASPIRIN. [Concomitant]
     Active Substance: ASPIRIN
  22. BUMETANIDE. [Concomitant]
     Active Substance: BUMETANIDE
  23. CHLOROTHIAZIDE. [Concomitant]
     Active Substance: CHLOROTHIAZIDE
  24. FAMOTIDINE. [Concomitant]
     Active Substance: FAMOTIDINE

REACTIONS (5)
  - Thromboembolectomy [None]
  - Irritability [None]
  - Condition aggravated [None]
  - Cyanosis [None]
  - Dyspnoea [None]

NARRATIVE: CASE EVENT DATE: 20210530
